FAERS Safety Report 5806349-X (Version None)
Quarter: 2008Q3

REPORT INFORMATION
  Report Type: 
  Country: None (occurrence: None)
  Receive Date: 20080710
  Receipt Date: 20080630
  Transmission Date: 20090109
  Serious: Yes (Hospitalization)
  Sender: FDA-Public Use
  Company Number: JP-ROCHE-539113

PATIENT
  Sex: Male
  Weight: 90.7 kg

DRUGS (9)
  1. PEGASYS [Suspect]
     Route: 058
     Dates: start: 20071107, end: 20080109
  2. RIBAVIRIN [Suspect]
     Route: 048
     Dates: start: 20071107, end: 20080109
  3. CHOLEBRINE [Concomitant]
     Dates: start: 20040101
  4. MYONAL [Concomitant]
     Dates: start: 20040101
  5. GASTER [Concomitant]
     Dates: start: 20040101
  6. AMLODIPINE [Concomitant]
     Dates: start: 20040101
  7. NITRAZEPAM [Concomitant]
     Dates: start: 20040101
  8. HALCION [Concomitant]
     Dates: start: 20040101
  9. LENDORMIN [Concomitant]
     Dates: start: 20040101

REACTIONS (1)
  - ASCITES [None]
